FAERS Safety Report 13176366 (Version 1)
Quarter: 2017Q1

REPORT INFORMATION
  Report Type: Report from Study
  Country: BG (occurrence: BG)
  Receive Date: 20170201
  Receipt Date: 20170201
  Transmission Date: 20170428
  Serious: Yes (Hospitalization, Other)
  Sender: FDA-Public Use
  Company Number: BG-TOLMAR, INC.-2016BG004150

PATIENT
  Sex: Male
  Weight: 95 kg

DRUGS (3)
  1. ELIGARD [Suspect]
     Active Substance: LEUPROLIDE ACETATE
     Indication: PROSTATE CANCER
     Dosage: 45 MG, UNK
     Route: 065
     Dates: start: 20150930
  2. ELIGARD [Suspect]
     Active Substance: LEUPROLIDE ACETATE
     Dosage: 45 MG, UNK
     Route: 065
     Dates: start: 20160411
  3. BICALUTAMIDE. [Concomitant]
     Active Substance: BICALUTAMIDE
     Dosage: UNK
     Dates: start: 20150910

REACTIONS (1)
  - Metastases to bone [Recovering/Resolving]

NARRATIVE: CASE EVENT DATE: 20151201
